FAERS Safety Report 11853600 (Version 1)
Quarter: 2015Q4

REPORT INFORMATION
  Report Type: Spontaneous
  Country: US (occurrence: US)
  Receive Date: 20151219
  Receipt Date: 20151219
  Transmission Date: 20160305
  Serious: No
  Sender: FDA-Public Use
  Company Number: US-BAUSCH-BL-2015-018330

PATIENT
  Sex: Female

DRUGS (4)
  1. XENAZINE [Suspect]
     Active Substance: TETRABENAZINE
     Dosage: WEEK 3
     Route: 048
     Dates: start: 201507
  2. XENAZINE [Suspect]
     Active Substance: TETRABENAZINE
     Indication: HUNTINGTON^S DISEASE
     Dosage: WEEK 1
     Route: 048
     Dates: start: 20150702
  3. XENAZINE [Suspect]
     Active Substance: TETRABENAZINE
     Dosage: WEEK 2
     Route: 048
     Dates: start: 201507
  4. XENAZINE [Suspect]
     Active Substance: TETRABENAZINE
     Dosage: WEEK 4
     Route: 048
     Dates: start: 201507

REACTIONS (3)
  - Depression [Unknown]
  - Vomiting [Unknown]
  - Treatment noncompliance [Unknown]
